FAERS Safety Report 7185689-9 (Version None)
Quarter: 2010Q4

REPORT INFORMATION
  Report Type: 
  Country: None (occurrence: None)
  Receive Date: 20101123
  Receipt Date: 20100910
  Transmission Date: 20110411
  Serious: No
  Sender: FDA-Public Use
  Company Number: 018628

PATIENT
  Sex: Female

DRUGS (2)
  1. CIMZIA [Suspect]
     Dosage: (UNSPECIFIED SUBCUTANEOUS) ; (DOSE INCREASED TO EVERY 3 WEEKS SUBCUTANEOUS)
     Route: 058
     Dates: start: 20100310, end: 20100101
  2. CIMZIA [Suspect]
     Dosage: (UNSPECIFIED SUBCUTANEOUS) ; (DOSE INCREASED TO EVERY 3 WEEKS SUBCUTANEOUS)
     Route: 058
     Dates: start: 20100101

REACTIONS (1)
  - CONDITION AGGRAVATED [None]
